FAERS Safety Report 13587609 (Version 1)
Quarter: 2017Q2

REPORT INFORMATION
  Report Type: Spontaneous
  Country: KR (occurrence: KR)
  Receive Date: 20170526
  Receipt Date: 20170526
  Transmission Date: 20170830
  Serious: Yes (Hospitalization)
  Sender: FDA-Public Use
  Company Number: KR-009507513-1705KOR013732

PATIENT
  Age: 42 Year
  Sex: Male
  Weight: 55.1 kg

DRUGS (32)
  1. ALOXI [Concomitant]
     Active Substance: PALONOSETRON HYDROCHLORIDE
     Dosage: 0.25 MG, ONCE
     Route: 042
     Dates: start: 20160428, end: 20160428
  2. EMEND (FOSAPREPITANT DIMEGLUMINE) [Suspect]
     Active Substance: FOSAPREPITANT DIMEGLUMINE
     Dosage: 150 MG, ONCE
     Route: 042
     Dates: start: 20160428, end: 20160428
  3. CISPLATIN. [Concomitant]
     Active Substance: CISPLATIN
     Dosage: 97 MG, ONCE, STRENGTH 50MG/100ML
     Route: 042
     Dates: start: 20160428, end: 20160428
  4. DEXAMETHASONE SODIUM PHOSPHATE. [Concomitant]
     Active Substance: DEXAMETHASONE SODIUM PHOSPHATE
     Indication: ANTIEMETIC SUPPORTIVE CARE
     Dosage: 5 MG, QD, STRENGTH 5 MG/ML
     Route: 042
     Dates: start: 20160401, end: 20160406
  5. MUCOSTEN [Concomitant]
     Indication: PROPHYLAXIS
     Dosage: 300 MG, QD, STRENGTH: 10% 3 ML
     Route: 042
     Dates: start: 20160126, end: 20160404
  6. MOTILITONE [Concomitant]
     Active Substance: HERBALS
     Indication: PROPHYLAXIS
     Dosage: 1 TABLET, TID
     Route: 048
     Dates: start: 20160413, end: 20160413
  7. BESZYME [Concomitant]
     Indication: PROPHYLAXIS
     Dosage: 1 TABLET, TID
     Route: 048
     Dates: start: 20160412
  8. SYNTHYROXINE [Concomitant]
     Active Substance: LEVOTHYROXINE SODIUM
     Indication: HYPOTHYROIDISM
     Dosage: 0.1 MG, QD
     Route: 048
     Dates: start: 20160318
  9. PANTOLINE INJECTION [Concomitant]
     Indication: PROPHYLAXIS
     Dosage: 40 MG, QD
     Route: 042
     Dates: start: 20160120, end: 20160405
  10. LASIX [Concomitant]
     Active Substance: FUROSEMIDE
     Indication: CHEMOTHERAPY
     Dosage: 20 MG, QD, STRENGTH 20MG/2ML
     Route: 042
     Dates: start: 20160407, end: 20160408
  11. TRIDOL (TRAMADOL HYDROCHLORIDE) [Concomitant]
     Indication: CANCER PAIN
     Dosage: 50 MG, BID, STRENGTH 50 MG/ML
     Route: 042
     Dates: start: 20160412, end: 20160416
  12. CISPLATIN. [Concomitant]
     Active Substance: CISPLATIN
     Indication: CHEMOTHERAPY
     Dosage: 97 MG, ONCE, STRENGTH 50MG/100ML
     Route: 042
     Dates: start: 20160407, end: 20160407
  13. DEXAMETHASONE SODIUM PHOSPHATE. [Concomitant]
     Active Substance: DEXAMETHASONE SODIUM PHOSPHATE
     Dosage: 8 MG, QD, STRENGTH 5 MG/ML
     Route: 042
     Dates: start: 20160408, end: 20160411
  14. DEXAMETHASONE SODIUM PHOSPHATE. [Concomitant]
     Active Substance: DEXAMETHASONE SODIUM PHOSPHATE
     Dosage: 12 MG, ONCE, STRENGTH 5 MG/ML
     Route: 042
     Dates: start: 20160428, end: 20160428
  15. DEXAMETHASONE SODIUM PHOSPHATE. [Concomitant]
     Active Substance: DEXAMETHASONE SODIUM PHOSPHATE
     Dosage: 8 MG, ONCE, STRENGTH 5 MG/ML
     Route: 042
     Dates: start: 20160429, end: 20160429
  16. TAXOTERE [Concomitant]
     Active Substance: DOCETAXEL
     Indication: CHEMOTHERAPY
     Dosage: 120 MG, ONCE, STRENGTH: 80MG/4ML
     Route: 042
     Dates: start: 20160407, end: 20160407
  17. TAXOTERE [Concomitant]
     Active Substance: DOCETAXEL
     Dosage: 120 MG, ONCE, STRENGTH: 80MG/4ML
     Route: 042
     Dates: start: 20160428, end: 20160428
  18. DEXAMETHASONE SODIUM PHOSPHATE. [Concomitant]
     Active Substance: DEXAMETHASONE SODIUM PHOSPHATE
     Indication: CANCER PAIN
     Dosage: 12 MG, ONCE, STRENGTH 5 MG/ML
     Route: 042
     Dates: start: 20160407, end: 20160407
  19. DEXAMETHASONE SODIUM PHOSPHATE. [Concomitant]
     Active Substance: DEXAMETHASONE SODIUM PHOSPHATE
     Dosage: 8 MG, QD, STRENGTH 5 MG/ML
     Route: 042
     Dates: start: 20160430, end: 20160501
  20. ALOXI [Concomitant]
     Active Substance: PALONOSETRON HYDROCHLORIDE
     Indication: ANTIEMETIC SUPPORTIVE CARE
     Dosage: 0.25 MG, ONCE
     Route: 042
     Dates: start: 20160407, end: 20160407
  21. LANSTON [Concomitant]
     Active Substance: LANSOPRAZOLE
     Indication: PROPHYLAXIS AGAINST GASTROINTESTINAL ULCER
     Dosage: 15 MG, QD
     Route: 048
     Dates: start: 20160406
  22. MANNITOL. [Concomitant]
     Active Substance: MANNITOL
     Indication: PREMEDICATION
     Dosage: 100 ML, ONCE
     Route: 042
     Dates: start: 20160407, end: 20160407
  23. DUPHALAC [Concomitant]
     Active Substance: LACTULOSE
     Indication: CONSTIPATION PROPHYLAXIS
     Dosage: 20 ML, TID
     Route: 048
     Dates: start: 20160408, end: 20160417
  24. ALDACTONE [Concomitant]
     Active Substance: SPIRONOLACTONE
     Indication: FACE OEDEMA
     Dosage: 25 MG, QD
     Route: 048
     Dates: start: 20160220, end: 20160405
  25. GANAKHAN [Concomitant]
     Indication: PROPHYLAXIS
     Dosage: 50 MG, TID
     Route: 048
     Dates: start: 20160322
  26. MEGACE [Concomitant]
     Active Substance: MEGESTROL ACETATE
     Indication: PROPHYLAXIS
     Dosage: 625 MG, QD
     Route: 048
     Dates: start: 20160323
  27. BACLOFEN. [Concomitant]
     Active Substance: BACLOFEN
     Indication: HICCUPS
     Dosage: 10 MG, QD
     Route: 048
     Dates: start: 20160403, end: 20160405
  28. ENAFON [Concomitant]
     Indication: CANCER PAIN
     Dosage: 10 MG, QD
     Route: 048
     Dates: start: 20160406
  29. EMEND (FOSAPREPITANT DIMEGLUMINE) [Suspect]
     Active Substance: FOSAPREPITANT DIMEGLUMINE
     Indication: PROPHYLAXIS OF NAUSEA AND VOMITING
     Dosage: 150 MG, ONCE
     Route: 042
     Dates: start: 20160407, end: 20160407
  30. MAGNESIUM OXIDE. [Concomitant]
     Active Substance: MAGNESIUM OXIDE
     Indication: CONSTIPATION PROPHYLAXIS
     Dosage: 500 MG, TID
     Route: 048
     Dates: start: 20160205
  31. LYRICA [Concomitant]
     Active Substance: PREGABALIN
     Indication: CANCER PAIN
     Dosage: 150 MG, BID
     Route: 048
     Dates: start: 20160401
  32. ATIVAN [Concomitant]
     Active Substance: LORAZEPAM
     Indication: ANXIETY
     Dosage: 0.5 MG, ONCE
     Route: 048
     Dates: start: 20160405, end: 20160405

REACTIONS (1)
  - Pyrexia [Recovered/Resolved]

NARRATIVE: CASE EVENT DATE: 20160414
